FAERS Safety Report 25288370 (Version 1)
Quarter: 2025Q2

REPORT INFORMATION
  Report Type: Spontaneous
  Country: IL (occurrence: IL)
  Receive Date: 20250509
  Receipt Date: 20250509
  Transmission Date: 20250717
  Serious: Yes (Other)
  Sender: ABBVIE
  Company Number: IL-ABBVIE-6275023

PATIENT
  Age: 60 Year
  Sex: Female

DRUGS (1)
  1. ELAHERE [Suspect]
     Active Substance: MIRVETUXIMAB SORAVTANSINE-GYNX
     Indication: Ovarian cancer
     Route: 042
     Dates: start: 2025

REACTIONS (1)
  - Necrosis [Unknown]

NARRATIVE: CASE EVENT DATE: 20250101
